FAERS Safety Report 14341646 (Version 1)
Quarter: 2018Q1

REPORT INFORMATION
  Report Type: Spontaneous
  Country: US (occurrence: US)
  Receive Date: 20180102
  Receipt Date: 20180102
  Transmission Date: 20180509
  Serious: No
  Sender: FDA-Public Use
  Company Number: US-TEVA-761338ACC

PATIENT
  Sex: Female

DRUGS (1)
  1. CLONIDINE. [Suspect]
     Active Substance: CLONIDINE
     Indication: FLUSHING
     Dosage: DOSE STRENGTH: 0.1 MF
     Route: 065

REACTIONS (4)
  - Flushing [Unknown]
  - Condition aggravated [Unknown]
  - Nausea [Unknown]
  - Migraine [Unknown]
